FAERS Safety Report 7553629-6 (Version None)
Quarter: 2011Q2

REPORT INFORMATION
  Report Type: 
  Country: None (occurrence: None)
  Receive Date: 20110617
  Receipt Date: 20110607
  Transmission Date: 20111010
  Serious: Yes (Other)
  Sender: FDA-Public Use
  Company Number: US-JNJFOC-20110604176

PATIENT
  Sex: Male
  Weight: 124.74 kg

DRUGS (12)
  1. STELARA [Suspect]
     Indication: PSORIASIS
     Route: 058
     Dates: start: 20091210
  2. PLAVIX [Concomitant]
     Indication: ILL-DEFINED DISORDER
  3. SKELAXIN [Concomitant]
     Indication: ILL-DEFINED DISORDER
  4. FISH OIL [Concomitant]
     Indication: ILL-DEFINED DISORDER
  5. NITROGLYCERIN [Concomitant]
     Indication: ILL-DEFINED DISORDER
  6. IBUPROFEN [Concomitant]
     Indication: ILL-DEFINED DISORDER
  7. ATENOLOL [Concomitant]
     Indication: ILL-DEFINED DISORDER
  8. LIPITOR [Concomitant]
     Indication: ILL-DEFINED DISORDER
  9. ZOLOFT [Concomitant]
     Indication: ILL-DEFINED DISORDER
  10. MULTI-VITAMINS [Concomitant]
     Indication: ILL-DEFINED DISORDER
  11. ASPIRIN [Concomitant]
     Indication: ILL-DEFINED DISORDER
  12. NEURONTIN [Concomitant]
     Indication: ILL-DEFINED DISORDER

REACTIONS (1)
  - MYOCARDIAL INFARCTION [None]
